FAERS Safety Report 20188880 (Version 1)
Quarter: 2021Q4

REPORT INFORMATION
  Report Type: Spontaneous
  Country: ES (occurrence: ES)
  Receive Date: 20211215
  Receipt Date: 20211215
  Transmission Date: 20220303
  Serious: Yes (Hospitalization)
  Sender: FDA-Public Use
  Company Number: None

PATIENT
  Age: 79 Year
  Sex: Female

DRUGS (6)
  1. DONEPEZIL [Suspect]
     Active Substance: DONEPEZIL
     Indication: Cognitive disorder
     Dosage: UNK
     Route: 048
     Dates: start: 202009, end: 20201005
  2. CYMBALTA [Concomitant]
     Active Substance: DULOXETINE HYDROCHLORIDE
     Indication: Product used for unknown indication
     Dosage: 30 MILLIGRAM, QD, HARD GASTRORESISTANT CAPSULES, 28 CAPSULES
     Route: 048
     Dates: start: 20180523
  3. CYANOCOBALAMIN [Concomitant]
     Active Substance: CYANOCOBALAMIN
     Dosage: 1000 MICROGRAM,  5 AMPOULES OF 2 ML MONTHLY
     Route: 030
     Dates: start: 20120704
  4. CALCIFEDIOL [Concomitant]
     Active Substance: CALCIFEDIOL
     Dosage: 266 MICROGRAM/KILOGRAM, MONTHLY, 10 DRINKABLE AMPOULES OF 1.5 ML
     Route: 048
     Dates: start: 20121111
  5. SINTROM [Concomitant]
     Active Substance: ACENOCOUMAROL
     Indication: Atrial fibrillation
     Dosage: 20 TABLETS
  6. Deprax [Concomitant]
     Dosage: 100 MILLIGRAM, QD, 60 TABLETS
     Route: 048
     Dates: start: 20160414

REACTIONS (2)
  - Fall [Recovered/Resolved]
  - Syncope [Recovered/Resolved]

NARRATIVE: CASE EVENT DATE: 20201005
